FAERS Safety Report 5960296-1 (Version None)
Quarter: 2008Q4

REPORT INFORMATION
  Report Type: 
  Country: None (occurrence: None)
  Receive Date: 20081120
  Receipt Date: 20081110
  Transmission Date: 20090506
  Serious: Yes (Hospitalization)
  Sender: FDA-Public Use
  Company Number: US-AVENTIS-200615919US

PATIENT
  Sex: Male
  Weight: 72.72 kg

DRUGS (7)
  1. KETEK [Suspect]
     Dates: start: 20060114, end: 20060119
  2. TYLENOL (CAPLET) [Concomitant]
     Dosage: DOSE: UNK
  3. COUGH AND COLD PREPARATIONS [Concomitant]
     Dosage: DOSE: UNK
  4. ACTIGALL [Concomitant]
  5. AUGMENTIN '125' [Concomitant]
     Indication: SINUSITIS
     Dates: start: 20051228, end: 20060101
  6. SUDAFED 12 HOUR [Concomitant]
     Dosage: DOSE: UNK
     Dates: start: 20051228
  7. IBUPROFEN TABLETS [Concomitant]
     Dosage: DOSE: UNK
     Dates: start: 20051228

REACTIONS (31)
  - ABDOMINAL PAIN UPPER [None]
  - ANXIETY [None]
  - ASTHENIA [None]
  - BLOOD ALBUMIN DECREASED [None]
  - BLOOD BILIRUBIN INCREASED [None]
  - BLOOD CHLORIDE DECREASED [None]
  - BLOOD GLUCOSE INCREASED [None]
  - CHOLANGITIS [None]
  - CHROMATURIA [None]
  - CHRONIC HEPATITIS [None]
  - EMOTIONAL DISTRESS [None]
  - FAECAL VOLUME DECREASED [None]
  - FAECES DISCOLOURED [None]
  - GALLBLADDER DISORDER [None]
  - HEADACHE [None]
  - HEPATIC FIBROSIS [None]
  - HEPATIC NECROSIS [None]
  - HEPATIC STEATOSIS [None]
  - HEPATOTOXICITY [None]
  - HYPOPHAGIA [None]
  - INFLUENZA LIKE ILLNESS [None]
  - INTERNATIONAL NORMALISED RATIO DECREASED [None]
  - JAUNDICE [None]
  - LIVER FUNCTION TEST ABNORMAL [None]
  - MENTAL DISORDER [None]
  - MICTURITION URGENCY [None]
  - NAUSEA [None]
  - RENAL CYST [None]
  - TEARFULNESS [None]
  - THINKING ABNORMAL [None]
  - VISION BLURRED [None]
